FAERS Safety Report 15421031 (Version 1)
Quarter: 2018Q3

REPORT INFORMATION
  Report Type: Spontaneous
  Country: US (occurrence: US)
  Receive Date: 20180924
  Receipt Date: 20180924
  Transmission Date: 20181010
  Serious: No
  Sender: FDA-Public Use
  Company Number: US-ALLERGAN-1773211US

PATIENT
  Sex: Female

DRUGS (3)
  1. MAGNESIUM CITRATE. [Concomitant]
     Active Substance: MAGNESIUM CITRATE
     Indication: CONSTIPATION
     Dosage: UNK, TWICE WEEKLY
     Route: 048
  2. LINZESS [Suspect]
     Active Substance: LINACLOTIDE
     Dosage: 72 ?G, QD
     Route: 048
     Dates: start: 20171218, end: 20171219
  3. LINZESS [Suspect]
     Active Substance: LINACLOTIDE
     Indication: CONSTIPATION
     Dosage: 72 ?G, QD
     Route: 048
     Dates: start: 20171207, end: 20171213

REACTIONS (7)
  - Throat tightness [Recovered/Resolved]
  - Swollen tongue [Not Recovered/Not Resolved]
  - Chapped lips [Recovered/Resolved]
  - Swollen tongue [Recovered/Resolved with Sequelae]
  - Tongue dry [Recovered/Resolved]
  - Dysuria [Not Recovered/Not Resolved]
  - Vulvovaginal burning sensation [Recovered/Resolved]

NARRATIVE: CASE EVENT DATE: 20171207
